FAERS Safety Report 14568464 (Version 1)
Quarter: 2018Q1

REPORT INFORMATION
  Report Type: Spontaneous
  Country: DE (occurrence: DE)
  Receive Date: 20180223
  Receipt Date: 20180223
  Transmission Date: 20180509
  Serious: Yes (Other)
  Sender: FDA-Public Use
  Company Number: DE-TEVA-2018-DE-859232

PATIENT
  Sex: Male

DRUGS (4)
  1. PROPRIONSAEURE [Concomitant]
  2. COPAXONE [Suspect]
     Active Substance: GLATIRAMER ACETATE
  3. VITAMIN D [Concomitant]
     Active Substance: CHOLECALCIFEROL
     Dosage: 8000 IU (INTERNATIONAL UNIT) DAILY;
  4. BOSCARI WEIHRAUCH [Concomitant]

REACTIONS (6)
  - Apathy [Unknown]
  - Fatigue [Unknown]
  - Multiple sclerosis relapse [Unknown]
  - Muscular weakness [Unknown]
  - Hypoaesthesia [Unknown]
  - Drug effect incomplete [Unknown]
